FAERS Safety Report 4662986-X (Version None)
Quarter: 2005Q2

REPORT INFORMATION
  Report Type: 
  Country: None (occurrence: None)
  Receive Date: 20050516
  Receipt Date: 20050506
  Transmission Date: 20051028
  Serious: Yes (Death)
  Sender: FDA-Public Use
  Company Number: US-MERCK-0505USA00860

PATIENT
  Sex: Female

DRUGS (5)
  1. VIOXX [Suspect]
     Route: 048
     Dates: start: 20020404, end: 20020701
  2. VIOXX [Concomitant]
     Route: 048
     Dates: start: 20020404, end: 20020701
  3. VIOXX [Concomitant]
     Route: 048
     Dates: start: 20020404, end: 20020701
  4. VIOXX [Concomitant]
     Route: 048
     Dates: start: 20020404, end: 20020701
  5. VIOXX [Concomitant]
     Route: 048
     Dates: start: 20020404, end: 20020701

REACTIONS (2)
  - CARDIOVASCULAR DISORDER [None]
  - PRESCRIBED OVERDOSE [None]
